FAERS Safety Report 16587575 (Version 2)
Quarter: 2019Q4

REPORT INFORMATION
  Report Type: Spontaneous
  Country: US (occurrence: US)
  Receive Date: 20190717
  Receipt Date: 20191122
  Transmission Date: 20200122
  Serious: Yes (Other)
  Sender: FDA-Public Use
  Company Number: US-JNJFOC-20190715140

PATIENT
  Sex: Male

DRUGS (1)
  1. ZYTIGA [Suspect]
     Active Substance: ABIRATERONE ACETATE
     Indication: PROSTATE CANCER
     Dosage: DOSAGE: 250MG, 4 TABLETS, DAILY,
     Route: 048
     Dates: start: 20180129

REACTIONS (3)
  - Bladder obstruction [Not Recovered/Not Resolved]
  - Musculoskeletal disorder [Unknown]
  - Bladder disorder [Not Recovered/Not Resolved]
